FAERS Safety Report 19386235 (Version 1)
Quarter: 2021Q2

REPORT INFORMATION
  Report Type: Spontaneous
  Country: DE (occurrence: DE)
  Receive Date: 20210607
  Receipt Date: 20210607
  Transmission Date: 20210717
  Serious: Yes (Other)
  Sender: FDA-Public Use
  Company Number: DE-TAKEDA-2021TUS035678

PATIENT
  Age: 76 Year
  Sex: Female

DRUGS (2)
  1. FLUANXOL DEPOT [Suspect]
     Active Substance: FLUPENTIXOL DECANOATE
     Indication: DEPRESSION
     Dosage: UNK, Q3WEEKS
     Route: 065
  2. BRINTELLIX [Suspect]
     Active Substance: VORTIOXETINE HYDROBROMIDE
     Indication: DEPRESSION
     Dosage: 1 GTT DROPS, QD
     Route: 065
     Dates: start: 202105

REACTIONS (3)
  - Underdose [Unknown]
  - Suicidal ideation [Unknown]
  - Depression [Unknown]
